FAERS Safety Report 4950530-9 (Version None)
Quarter: 2006Q1

REPORT INFORMATION
  Report Type: 
  Country: None (occurrence: None)
  Receive Date: 20060316
  Receipt Date: 20060306
  Transmission Date: 20060701
  Serious: Yes (Death, Hospitalization)
  Sender: FDA-Public Use
  Company Number: 430001L06BRA

PATIENT
  Age: 47 Year
  Sex: Female

DRUGS (2)
  1. MITOXANTRONE [Suspect]
     Indication: SECONDARY PROGRESSIVE MULTIPLE SCLEROSIS
     Dosage: 12 MG/M2, ONCE
     Dates: start: 20010801
  2. AVONEX [Concomitant]

REACTIONS (20)
  - ACUTE MYELOID LEUKAEMIA [None]
  - ACUTE RESPIRATORY FAILURE [None]
  - AMENORRHOEA [None]
  - ASTHENIA [None]
  - DIZZINESS [None]
  - GENERAL PHYSICAL HEALTH DETERIORATION [None]
  - HAEMATOMA [None]
  - HAEMORRHOIDS [None]
  - HYPOTENSION [None]
  - LYMPHADENOPATHY [None]
  - MONOPARESIS [None]
  - MYDRIASIS [None]
  - PUPILS UNEQUAL [None]
  - PYREXIA [None]
  - REFUSAL OF TREATMENT BY PATIENT [None]
  - SHOCK [None]
  - SOPOR [None]
  - SUBDURAL HAEMATOMA [None]
  - URINARY INCONTINENCE [None]
  - VOMITING [None]
